FAERS Safety Report 7555319-2 (Version None)
Quarter: 2011Q2

REPORT INFORMATION
  Report Type: 
  Country: None (occurrence: None)
  Receive Date: 20110617
  Receipt Date: 20110603
  Transmission Date: 20111010
  Serious: Yes (Other)
  Sender: FDA-Public Use
  Company Number: PHFR2011GB00859

PATIENT
  Sex: Female

DRUGS (1)
  1. ZOLEDRONIC ACID [Suspect]
     Indication: METASTASES TO BONE
     Dosage: 4 MG, QMO
     Dates: start: 20100701

REACTIONS (7)
  - ASTHENIA [None]
  - DIABETES INSIPIDUS [None]
  - DECREASED APPETITE [None]
  - PAROSMIA [None]
  - GASTRITIS [None]
  - WEIGHT DECREASED [None]
  - DYSGEUSIA [None]
